FAERS Safety Report 5736699-7 (Version None)
Quarter: 2008Q2

REPORT INFORMATION
  Report Type: 
  Country: None (occurrence: None)
  Receive Date: 20080513
  Receipt Date: 20080502
  Transmission Date: 20081010
  Serious: Yes (Other)
  Sender: FDA-Public Use
  Company Number: ES-PFIZER INC-2008039287

PATIENT
  Age: 14 Month

DRUGS (1)
  1. HYDROCORTISONE ACETATE [Suspect]
     Indication: INFANTILE SPASMS

REACTIONS (1)
  - HYPERTROPHIC CARDIOMYOPATHY [None]
